FAERS Safety Report 6669290-9 (Version None)
Quarter: 2010Q2

REPORT INFORMATION
  Report Type: 
  Country: None (occurrence: None)
  Receive Date: 20100406
  Receipt Date: 20100325
  Transmission Date: 20101027
  Serious: Yes (Hospitalization, Disabling)
  Sender: FDA-Public Use
  Company Number: JP-BAYER-201010962BYL

PATIENT
  Age: 49 Year
  Sex: Male
  Weight: 64 kg

DRUGS (3)
  1. GLUCOBAY [Suspect]
     Indication: TYPE 2 DIABETES MELLITUS
     Dosage: TOTAL DAILY DOSE: 300 MG  UNIT DOSE: 100 MG
     Route: 048
     Dates: start: 20091212, end: 20100224
  2. ADALAT CC [Concomitant]
     Indication: HYPERTENSION
     Dosage: UNIT DOSE: 20 MG
     Route: 048
     Dates: start: 20091207
  3. FLUITRAN [Concomitant]
     Indication: HYPERTENSION
     Dosage: UNIT DOSE: 2 MG
     Route: 048
     Dates: start: 20091212

REACTIONS (3)
  - CARDIAC FAILURE CONGESTIVE [None]
  - GLOMERULONEPHRITIS RAPIDLY PROGRESSIVE [None]
  - RENAL IMPAIRMENT [None]
